FAERS Safety Report 9806445 (Version 2)
Quarter: 2014Q1

REPORT INFORMATION
  Report Type: Report from Study
  Country: DE (occurrence: DE)
  Receive Date: 20140109
  Receipt Date: 20140210
  Transmission Date: 20141002
  Serious: Yes (Other)
  Sender: FDA-Public Use
  Company Number: DE-B.I. PHARMACEUTICALS,INC./RIDGEFIELD-2014-BI-00835BI

PATIENT
  Age: 36 Year
  Sex: Female

DRUGS (2)
  1. VIRAMUNE [Suspect]
     Indication: HIV INFECTION
     Dosage: 400 MG
     Route: 048
  2. TRUVADA TVD [Concomitant]
     Dosage: 1 ANZ
     Route: 048

REACTIONS (1)
  - Abortion induced [Unknown]
